FAERS Safety Report 11712119 (Version 1)
Quarter: 2015Q4

REPORT INFORMATION
  Report Type: Spontaneous
  Country: US (occurrence: US)
  Receive Date: 20151104
  Receipt Date: 20151104
  Transmission Date: 20160304
  Serious: No
  Sender: FDA-Public Use
  Company Number: US-ELI_LILLY_AND_COMPANY-US201107000305

PATIENT
  Sex: Female

DRUGS (3)
  1. FORTEO [Suspect]
     Active Substance: TERIPARATIDE
     Indication: OSTEOPOROSIS
     Dosage: 20 UG, QD
  2. FORTEO [Suspect]
     Active Substance: TERIPARATIDE
     Dosage: 20 UG, QD
     Dates: start: 200102
  3. RECLAST [Concomitant]
     Active Substance: ZOLEDRONIC ACID
     Dosage: 2 DF, UNK

REACTIONS (4)
  - Injection site pain [Unknown]
  - Incorrect drug administration duration [Unknown]
  - Injection site mass [Unknown]
  - Drug dose omission [Unknown]
